FAERS Safety Report 8216626-3 (Version None)
Quarter: 2012Q1

REPORT INFORMATION
  Report Type: 
  Country: None (occurrence: None)
  Receive Date: 20120316
  Receipt Date: 20120315
  Transmission Date: 20120608
  Serious: Yes (Other)
  Sender: FDA-Public Use
  Company Number: US-PFIZER INC-2012068514

PATIENT
  Age: 58 Year
  Sex: Female
  Weight: 68.027 kg

DRUGS (1)
  1. NEURONTIN [Suspect]
     Indication: PROCEDURAL PAIN
     Dosage: 300 MG, 3X/DAY
     Dates: start: 20120303

REACTIONS (2)
  - CYSTITIS [None]
  - BLOOD URINE PRESENT [None]
